FAERS Safety Report 5792349-5 (Version None)
Quarter: 2008Q2

REPORT INFORMATION
  Report Type: 
  Country: None (occurrence: None)
  Receive Date: 20080623
  Receipt Date: 20080612
  Transmission Date: 20081010
  Serious: Yes (Hospitalization)
  Sender: FDA-Public Use
  Company Number: 150001L08ITA

PATIENT
  Age: 40 Year
  Sex: Female

DRUGS (3)
  1. FOLLITROPIN ALPHA (FOLLITROPIN ALFA) [Suspect]
     Indication: ASSISTED FERTILISATION
  2. CHORIONIC GONADTROPIN [Suspect]
     Indication: ASSISTED FERTILISATION
  3. LUTROPIN ALFA (LUTROPIN ALFA) [Suspect]

REACTIONS (4)
  - CAESAREAN SECTION [None]
  - DRUG EXPOSURE DURING PREGNANCY [None]
  - MYOCARDIAL INFARCTION [None]
  - OVARIAN ENLARGEMENT [None]
